FAERS Safety Report 4397382-6 (Version None)
Quarter: 2004Q2

REPORT INFORMATION
  Report Type: 
  Country: None (occurrence: None)
  Receive Date: 20040621
  Receipt Date: 20031209
  Transmission Date: 20050107
  Serious: Yes (Death)
  Sender: FDA-Public Use
  Company Number: USA-2003-0011814

PATIENT
  Age: 27 Year
  Sex: Male
  Weight: 73 kg

DRUGS (9)
  1. OXYCODONE HCL [Suspect]
     Dosage: MG,
  2. MORPHINE SULFATE [Suspect]
     Dosage: MG,
  3. CODEINE (CODEINE) [Suspect]
     Dosage: MG,
  4. TRAZODONE HCL [Suspect]
     Dosage: MG,
  5. CITALOPRAM [Suspect]
     Dosage: MG,
  6. DIAZEPAM [Suspect]
     Dosage: MG,
  7. OXAZEPAM [Suspect]
     Dosage: MG,
  8. TEMAZEPAM [Suspect]
     Dosage: MG,
  9. COCAINE (COCAINE) [Suspect]
     Dosage: MG,

REACTIONS (1)
  - MULTIPLE DRUG OVERDOSE ACCIDENTAL [None]
